FAERS Safety Report 5845481-1 (Version None)
Quarter: 2008Q3

REPORT INFORMATION
  Report Type: 
  Country: None (occurrence: None)
  Receive Date: 20080814
  Receipt Date: 20080808
  Transmission Date: 20090109
  Serious: Yes (Other)
  Sender: FDA-Public Use
  Company Number: DE-WYE-G01606208

PATIENT
  Age: 22 Year
  Sex: Female
  Weight: 70 kg

DRUGS (4)
  1. TREVILOR RETARD [Suspect]
     Indication: DEPRESSIVE SYMPTOM
     Route: 048
     Dates: end: 20080506
  2. ZOPICLONE [Concomitant]
     Indication: SLEEP DISORDER
     Route: 048
  3. LORAZEPAM [Concomitant]
  4. SERDOLECT [Interacting]
     Indication: PSYCHOTIC DISORDER
     Route: 048
     Dates: start: 20080201

REACTIONS (2)
  - DRUG INTERACTION [None]
  - ELECTROCARDIOGRAM QT PROLONGED [None]
